FAERS Safety Report 7363892-2 (Version None)
Quarter: 2011Q1

REPORT INFORMATION
  Report Type: 
  Country: None (occurrence: None)
  Receive Date: 20110321
  Receipt Date: 20110308
  Transmission Date: 20110831
  Serious: Yes (Hospitalization)
  Sender: FDA-Public Use
  Company Number: IT-JNJFOC-20110304582

PATIENT
  Age: 40 Year
  Sex: Female

DRUGS (2)
  1. MESALAMINE [Concomitant]
  2. REMICADE [Suspect]
     Indication: COLITIS ULCERATIVE
     Route: 042

REACTIONS (4)
  - LUPUS-LIKE SYNDROME [None]
  - MYALGIA [None]
  - PYREXIA [None]
  - ARTHRALGIA [None]
